FAERS Safety Report 21446979 (Version 1)
Quarter: 2022Q4

REPORT INFORMATION
  Report Type: Spontaneous
  Country: ES (occurrence: ES)
  Receive Date: 20221012
  Receipt Date: 20221012
  Transmission Date: 20230112
  Serious: Yes (Hospitalization)
  Sender: FDA-Public Use
  Company Number: None

PATIENT
  Age: 85 Year
  Sex: Female

DRUGS (16)
  1. ZOLPIDEM [Suspect]
     Active Substance: ZOLPIDEM TARTRATE
     Indication: Insomnia
     Dosage: 10.0MG C/24H,THERAPY DURATION : 27  DAYS
     Route: 065
     Dates: start: 20210812, end: 20210908
  2. LEVOMEPROMAZINE MALEATE [Suspect]
     Active Substance: LEVOMEPROMAZINE MALEATE
     Indication: Agitation
     Dosage: 25.0 MG C/12 H, THERAPY DURATION : 13  DAYS
     Route: 065
     Dates: start: 20210824, end: 20210906
  3. RILAST [Concomitant]
     Active Substance: BUDESONIDE\FORMOTEROL
     Indication: Dyspnoea
     Dosage: 2.0 PUFF C/12 H, 160 MICROGRAMS/4.5 MICROGRAMS/INHALATION, 1 INHALER OF 120 DOSES
     Route: 065
     Dates: start: 20180806
  4. OMEPRAZOL CINFA [Concomitant]
     Indication: Gastritis
     Dosage: 20.0 MG A-DE, EFG, 56 CAPSULES (BOTTLE), STRENGTH : 20 MG
     Dates: start: 20210429
  5. RIVOTRIL [Concomitant]
     Active Substance: CLONAZEPAM
     Indication: Anxiety
     Dosage: 0.5 MG CO,  60 TABLETS, STRENGTH : 0.5 MG
     Dates: start: 20100528
  6. BISOPROLOL FUMARATE [Concomitant]
     Active Substance: BISOPROLOL FUMARATE
     Indication: Atrial fibrillation
     Dosage: 2.5 MG DE,  EFG, 28 TABLETS, STRENGTH : 2.5 MG
     Dates: start: 20160811
  7. HALOPERIDOL [Concomitant]
     Active Substance: HALOPERIDOL
     Indication: Panic reaction
     Dosage: 1.0 MG CE,  1 BOTTLE OF 30 ML, STRENGTH : 2 MG/ML
     Dates: start: 20210812
  8. PROLIA [Concomitant]
     Active Substance: DENOSUMAB
     Indication: Spinal fracture
     Dosage: 60.0 MG, 60 MG, 1 PRE-FILLED SYRINGE OF 1 ML, STRENGTH : 60 MG
     Dates: start: 20200905
  9. FOLIC ACID [Concomitant]
     Active Substance: FOLIC ACID
     Indication: Anaemia
     Dosage: 5.0 MG A-DE, STRENGTH : 5 MG,  28 TABLETS
     Dates: start: 20210611
  10. ESCITALOPRAM NORMON [Concomitant]
     Indication: Persistent depressive disorder
     Dosage: 20.0 MG DE, STRENGTH : 20 MG,  EFG, 56 TABLETS
     Dates: start: 20210429
  11. FUROSEMIDE [Concomitant]
     Active Substance: FUROSEMIDE
     Indication: Cardiac failure
     Dosage: 40.0 MG DECOCE,  EFG, 30 TABLETS, STRENGTH : 40 MG
     Dates: start: 20201001
  12. SINTROM [Concomitant]
     Active Substance: ACENOCOUMAROL
     Indication: Coagulopathy
     Dosage: 2.0 MG CE, 20 TABLETS, STRENGTH:  4 MG
     Dates: start: 20160810
  13. FERPLEX [Concomitant]
     Indication: Anaemia
     Dosage: 800.0 MG A-DECE, STRENGTH ; 40 MG,  20 DRINKABLE VIALS OF 15 ML
     Dates: start: 20210611
  14. ALDACTONE [Concomitant]
     Active Substance: SPIRONOLACTONE
     Indication: Cardiac failure
     Dosage: 25.0 MG DE, STRENGTH : 25 MG,  50 TABLETS
     Dates: start: 20191206
  15. ALLOPURINOL [Concomitant]
     Active Substance: ALLOPURINOL
     Indication: Product used for unknown indication
     Dosage: 100.0 MG DE, 100 TABLETS, STRENGTH : 100 MG
     Dates: start: 20200220
  16. ATROVENT [Concomitant]
     Active Substance: IPRATROPIUM BROMIDE
     Indication: Bronchitis
     Dosage: STRENGTH : 20 MICROGRAMS, UNIT DOSE : 40 MICROGRAMS, FREQUENCY TIME : 6 HOURS, 1 INHALER OF 200 DOSE
     Dates: start: 20191205

REACTIONS (1)
  - Hypersomnia [Recovered/Resolved]

NARRATIVE: CASE EVENT DATE: 20210901
